FAERS Safety Report 14753337 (Version 1)
Quarter: 2018Q2

REPORT INFORMATION
  Report Type: Spontaneous
  Country: US (occurrence: US)
  Receive Date: 20180412
  Receipt Date: 20180412
  Transmission Date: 20180711
  Serious: No
  Sender: FDA-Public Use
  Company Number: US-ALLERGAN-1759257US

PATIENT
  Weight: 54.42 kg

DRUGS (2)
  1. FEMRING [Suspect]
     Active Substance: ESTRADIOL ACETATE
     Indication: MENOPAUSE
     Dosage: UNK
     Route: 067
     Dates: end: 20171009
  2. ARMOUR THYROID [Concomitant]
     Active Substance: THYROID, PORCINE
     Indication: HYPOTHYROIDISM
     Dosage: 90 MG, QD
     Route: 065

REACTIONS (2)
  - Drug dose omission [Unknown]
  - Drug ineffective [Unknown]
